FAERS Safety Report 25145564 (Version 1)
Quarter: 2025Q2

REPORT INFORMATION
  Report Type: Spontaneous
  Country: JP (occurrence: JP)
  Receive Date: 20250401
  Receipt Date: 20250401
  Transmission Date: 20250717
  Serious: Yes (Hospitalization)
  Sender: MERCK SHARP AND DOHME
  Company Number: JP-009507513-2255302

PATIENT
  Age: 6 Decade
  Sex: Male

DRUGS (3)
  1. KEYTRUDA [Suspect]
     Active Substance: PEMBROLIZUMAB
     Indication: Non-small cell lung cancer stage IV
     Dosage: (COMBINATION THERAPY) (FOR THE 1ST LINE TREATMENT)
     Route: 041
     Dates: start: 20231219, end: 20240228
  2. CARBOPLATIN [Suspect]
     Active Substance: CARBOPLATIN
     Indication: Lung adenocarcinoma stage IV
     Route: 041
     Dates: start: 20231219, end: 20240228
  3. PEMETREXED [Suspect]
     Active Substance: PEMETREXED
     Indication: Malignant ascites
     Route: 041
     Dates: start: 20231219, end: 20240228

REACTIONS (1)
  - Performance status decreased [Not Recovered/Not Resolved]
